FAERS Safety Report 11895489 (Version 1)
Quarter: 2016Q1

REPORT INFORMATION
  Report Type: Spontaneous
  Country: US (occurrence: None)
  Receive Date: 20160106
  Receipt Date: 20160106
  Transmission Date: 20160526
  Serious: No
  Sender: FDA-Public Use
  Company Number: None

PATIENT
  Age: 22 Month
  Sex: Male

DRUGS (1)
  1. AZITHROMYCIN ANHYDROUS. [Suspect]
     Active Substance: AZITHROMYCIN ANHYDROUS
     Indication: OTITIS MEDIA
     Route: 048
     Dates: start: 20151230, end: 20160102

REACTIONS (2)
  - Urticaria [None]
  - Rash [None]

NARRATIVE: CASE EVENT DATE: 20160102
